FAERS Safety Report 17395067 (Version 5)
Quarter: 2020Q3

REPORT INFORMATION
  Report Type: Spontaneous
  Country: CH (occurrence: CH)
  Receive Date: 20200210
  Receipt Date: 20200805
  Transmission Date: 20201102
  Serious: Yes (Death, Hospitalization, Other)
  Sender: FDA-Public Use
  Company Number: CH-TEVA-2020-CH-1182384

PATIENT
  Age: 47 Year
  Sex: Male

DRUGS (2)
  1. GAZYVARO [Suspect]
     Active Substance: OBINUTUZUMAB
     Indication: B-CELL LYMPHOMA
     Dosage: (TOTAL OF 5 CYCLES)
     Route: 041
     Dates: start: 20171228, end: 20180426
  2. RIBOMUSTIN [Suspect]
     Active Substance: BENDAMUSTINE HYDROCHLORIDE
     Indication: B-CELL LYMPHOMA
     Dosage: (TOTAL OF 5 CYCLES)
     Route: 041
     Dates: start: 20171228, end: 20180426

REACTIONS (18)
  - Metastases to meninges [Fatal]
  - Myelosuppression [Not Recovered/Not Resolved]
  - General physical health deterioration [Unknown]
  - Dysmetria [Unknown]
  - Progressive multifocal leukoencephalopathy [Unknown]
  - Cerebellar syndrome [Unknown]
  - Febrile neutropenia [Unknown]
  - Panencephalitis [Fatal]
  - Brain injury [Fatal]
  - Optic neuritis [Fatal]
  - Neurodegenerative disorder [Fatal]
  - Lymphoproliferative disorder [Unknown]
  - Myelitis [Recovered/Resolved]
  - Febrile neutropenia [Unknown]
  - Febrile neutropenia [Unknown]
  - Quadrantanopia [Fatal]
  - Dyspraxia [Unknown]
  - Pyrexia [Unknown]

NARRATIVE: CASE EVENT DATE: 201804
